FAERS Safety Report 24416675 (Version 1)
Quarter: 2024Q4

REPORT INFORMATION
  Report Type: Spontaneous
  Country: US (occurrence: None)
  Receive Date: 20241008
  Receipt Date: 20241008
  Transmission Date: 20250114
  Serious: Yes (Hospitalization)
  Sender: Public
  Company Number: None

PATIENT
  Age: 82 Year
  Sex: Male
  Weight: 84.9 kg

DRUGS (1)
  1. AVACOPAN [Suspect]
     Active Substance: AVACOPAN
     Dosage: FREQUENCY : TWICE A DAY;?
     Route: 048
     Dates: start: 20240828, end: 20240924

REACTIONS (5)
  - Pneumocystis jirovecii pneumonia [None]
  - Blood lactate dehydrogenase increased [None]
  - Nonspecific reaction [None]
  - Hypoxia [None]
  - General physical health deterioration [None]

NARRATIVE: CASE EVENT DATE: 20240927
